FAERS Safety Report 14251981 (Version 4)
Quarter: 2018Q1

REPORT INFORMATION
  Report Type: Spontaneous
  Country: BR (occurrence: BR)
  Receive Date: 20171205
  Receipt Date: 20180301
  Transmission Date: 20180508
  Serious: Yes (Hospitalization)
  Sender: FDA-Public Use
  Company Number: BR-GLAXOSMITHKLINE-BR2017GSK185222

PATIENT
  Sex: Male

DRUGS (3)
  1. CLONAZEPAM. [Concomitant]
     Active Substance: CLONAZEPAM
     Indication: INSOMNIA
     Dosage: UNK
  2. VANISTO [Suspect]
     Active Substance: UMECLIDINIUM BROMIDE
     Indication: PNEUMONIA
     Dosage: UNK UNK, QD
     Dates: start: 20171102
  3. VANISTO [Suspect]
     Active Substance: UMECLIDINIUM BROMIDE
     Indication: EMPHYSEMA

REACTIONS (8)
  - Malaise [Recovered/Resolved]
  - Tremor [Recovered/Resolved]
  - Dyspnoea [Recovered/Resolved]
  - Fatigue [Unknown]
  - Pyrexia [Recovered/Resolved]
  - Drug prescribing error [Unknown]
  - Cough [Unknown]
  - Product use in unapproved indication [Unknown]
